FAERS Safety Report 15279946 (Version 1)
Quarter: 2018Q3

REPORT INFORMATION
  Report Type: Report from Study
  Country: FR (occurrence: FR)
  Receive Date: 20180815
  Receipt Date: 20180815
  Transmission Date: 20181010
  Serious: Yes (Hospitalization)
  Sender: FDA-Public Use
  Company Number: FR-TEVA-2018-FR-940283

PATIENT
  Age: 38 Year
  Sex: Female
  Weight: 65 kg

DRUGS (15)
  1. DEXERYL /01579901/ [Concomitant]
     Active Substance: GLYCERIN\MINERAL OIL\PETROLATUM
     Dosage: UNK
     Dates: start: 20130211
  2. ACECLOFENAC [Concomitant]
     Active Substance: ACECLOFENAC
     Dosage: UNK
  3. METHOTREXATE SODIUM. [Suspect]
     Active Substance: METHOTREXATE SODIUM
     Dosage: 15 MG WEEKLY
     Route: 048
     Dates: start: 20150630, end: 20150918
  4. ENBREL [Suspect]
     Active Substance: ETANERCEPT
     Indication: PSORIASIS
     Dosage: 50 MG, 2X/WEEK
     Route: 058
     Dates: start: 20170707, end: 20171020
  5. STELARA [Concomitant]
     Active Substance: USTEKINUMAB
     Dosage: 90 MG, CYCLIC: EVERY 8WEEKS
     Route: 058
     Dates: start: 20171020
  6. DAIVOBET [Concomitant]
     Active Substance: BETAMETHASONE DIPROPIONATE\CALCIPOTRIENE
     Dosage: UNK
  7. STELARA [Concomitant]
     Active Substance: USTEKINUMAB
     Indication: PSORIASIS
     Dosage: 45 MG, EVERY 4 WEEKS
     Route: 058
     Dates: start: 20130211, end: 20130312
  8. KETOPROFEN. [Concomitant]
     Active Substance: KETOPROFEN
     Dosage: UNK
  9. KLIPAL CODEINE [Concomitant]
     Active Substance: ACETAMINOPHEN\CODEINE PHOSPHATE
     Dosage: UNK
  10. STELARA [Concomitant]
     Active Substance: USTEKINUMAB
     Dosage: 45 MG, CYCLIC: EVERY 8 WEEKS
     Route: 058
     Dates: start: 20130620, end: 20140107
  11. STELARA [Concomitant]
     Active Substance: USTEKINUMAB
     Dosage: 45 MG, CYCLIC: EVERY 8 WEEKS
     Route: 058
     Dates: start: 201501, end: 20160322
  12. STELARA [Concomitant]
     Active Substance: USTEKINUMAB
     Dosage: 90 MG, CYCLIC: EVERY 8 WEEKS
     Route: 058
     Dates: start: 20160322, end: 201609
  13. METHOTREXATE SODIUM. [Suspect]
     Active Substance: METHOTREXATE SODIUM
     Indication: PSORIASIS
     Dosage: 25 MG, WEEKLY
     Route: 058
     Dates: start: 2011, end: 201203
  14. STELARA [Concomitant]
     Active Substance: USTEKINUMAB
     Dosage: 90 MG, CYCLIC: EVERY 8 WEEKS
     Route: 058
     Dates: start: 20140107, end: 201501
  15. STELARA [Concomitant]
     Active Substance: USTEKINUMAB
     Dosage: 45 MG, CYCLIC: EVERY 12 WEEKS
     Route: 058
     Dates: start: 20130312, end: 20130620

REACTIONS (3)
  - Headache [Recovered/Resolved]
  - Drug ineffective [Not Recovered/Not Resolved]
  - Psoriasis [Not Recovered/Not Resolved]

NARRATIVE: CASE EVENT DATE: 20170823
